FAERS Safety Report 6045079-9 (Version None)
Quarter: 2009Q1

REPORT INFORMATION
  Report Type: 
  Country: None (occurrence: None)
  Receive Date: 20090116
  Receipt Date: 20090116
  Transmission Date: 20090719
  Serious: Yes (Hospitalization)
  Sender: FDA-Public Use
  Company Number: None

PATIENT
  Age: 66 Year
  Sex: Male

DRUGS (2)
  1. LISINOPRIL AND HYDROCHLOROTHIAZIDE [Suspect]
     Indication: HYPERTENSION
     Dosage: 1 TAB EVERY DAY PO
     Route: 048
     Dates: start: 20081014, end: 20081229
  2. INDOMETHACIN [Suspect]
     Indication: GOUT
     Dosage: 1 TAB ONCE PO
     Route: 048
     Dates: start: 20081229, end: 20081229

REACTIONS (3)
  - ANGIOEDEMA [None]
  - EXPIRED DRUG ADMINISTERED [None]
  - PRURITUS GENERALISED [None]
